FAERS Safety Report 21490396 (Version 3)
Quarter: 2022Q4

REPORT INFORMATION
  Report Type: Spontaneous
  Country: JP (occurrence: JP)
  Receive Date: 20221021
  Receipt Date: 20221117
  Transmission Date: 20230113
  Serious: Yes (Hospitalization)
  Sender: FDA-Public Use
  Company Number: JP-MTPC-MTPC2022-0008818

PATIENT
  Age: 45 Year
  Sex: Male

DRUGS (5)
  1. REMICADE [Suspect]
     Active Substance: INFLIXIMAB
     Indication: Crohn^s disease
     Dosage: 290 MILLIGRAM, QD
     Route: 041
     Dates: start: 20190618
  2. REMICADE [Suspect]
     Active Substance: INFLIXIMAB
     Dosage: 290 MILLIGRAM, QD
     Route: 041
  3. REMICADE [Suspect]
     Active Substance: INFLIXIMAB
     Dosage: 290 MILLIGRAM, QD
     Route: 041
     Dates: end: 20220322
  4. METHOTREXATE [Suspect]
     Active Substance: METHOTREXATE
     Indication: Product used for unknown indication
     Route: 048
  5. MESALAMINE [Concomitant]
     Active Substance: MESALAMINE
     Indication: Crohn^s disease
     Dosage: 1000 MILLIGRAM, TID
     Route: 048
     Dates: start: 20190514

REACTIONS (2)
  - Immune-mediated myositis [Recovering/Resolving]
  - Off label use [Unknown]

NARRATIVE: CASE EVENT DATE: 20220101
